FAERS Safety Report 17025137 (Version 1)
Quarter: 2019Q4

REPORT INFORMATION
  Report Type: Spontaneous
  Country: US (occurrence: US)
  Receive Date: 20191008
  Receipt Date: 20191008
  Transmission Date: 20200122
  Serious: Yes (Other)
  Sender: FDA-Public Use
  Company Number: None

PATIENT
  Age: 72 Year
  Sex: Female
  Weight: 83.91 kg

DRUGS (7)
  1. CALCIUM [Concomitant]
     Active Substance: CALCIUM
  2. SEROQUEL [Suspect]
     Active Substance: QUETIAPINE FUMARATE
     Indication: PRODUCT USED FOR UNKNOWN INDICATION
     Dosage: ?          QUANTITY:1 DF DOSAGE FORM;?
     Route: 048
     Dates: start: 201906, end: 201909
  3. SEROQUEL [Suspect]
     Active Substance: QUETIAPINE FUMARATE
     Indication: INSOMNIA
  4. VITAMIN B12 [Concomitant]
     Active Substance: CYANOCOBALAMIN
  5. MULTIVITAMIN + MINERAL [Concomitant]
     Active Substance: MINERALS\VITAMINS
  6. LEVOTHYROXINE. [Suspect]
     Active Substance: LEVOTHYROXINE
  7. VITAMIN D3 [Concomitant]
     Active Substance: CHOLECALCIFEROL

REACTIONS (7)
  - Pain [None]
  - Oral pain [None]
  - Fatigue [None]
  - Oropharyngeal pain [None]
  - Erythema [None]
  - Throat irritation [None]
  - Product substitution issue [None]

NARRATIVE: CASE EVENT DATE: 20190619
